FAERS Safety Report 13181178 (Version 1)
Quarter: 2017Q1

REPORT INFORMATION
  Report Type: Spontaneous
  Country: US (occurrence: US)
  Receive Date: 20170202
  Receipt Date: 20170202
  Transmission Date: 20170428
  Serious: No
  Sender: FDA-Public Use
  Company Number: US-SMITH AND NEPHEW, INC-2016SMT00981

PATIENT
  Sex: Female
  Weight: 75.28 kg

DRUGS (8)
  1. UNSPECIFIED BLOOD PRESSURE PILL [Concomitant]
  2. LISINOPRIL. [Concomitant]
     Active Substance: LISINOPRIL
  3. RENVELA [Concomitant]
     Active Substance: SEVELAMER CARBONATE
  4. SENSIPAR [Concomitant]
     Active Substance: CINACALCET HYDROCHLORIDE
  5. TRADJENTA [Concomitant]
     Active Substance: LINAGLIPTIN
  6. VITAMINS [Concomitant]
     Active Substance: VITAMINS
  7. REGRANEX [Suspect]
     Active Substance: BECAPLERMIN
     Indication: BLISTER
     Dosage: UNK, AS DIRECTED
     Route: 061
     Dates: start: 201609
  8. REGRANEX [Suspect]
     Active Substance: BECAPLERMIN
     Dosage: UNK, EVERY 48 HOURS
     Dates: start: 2016

REACTIONS (4)
  - Impaired healing [Not Recovered/Not Resolved]
  - Application site pain [Not Recovered/Not Resolved]
  - Application site irritation [Unknown]
  - Inappropriate schedule of drug administration [Not Recovered/Not Resolved]

NARRATIVE: CASE EVENT DATE: 2016
